FAERS Safety Report 14151955 (Version 1)
Quarter: 2017Q4

REPORT INFORMATION
  Report Type: Spontaneous
  Country: FR (occurrence: FR)
  Receive Date: 20171102
  Receipt Date: 20171102
  Transmission Date: 20180321
  Serious: Yes (Life-Threatening, Hospitalization)
  Sender: FDA-Public Use
  Company Number: FR-ACCORD-060805

PATIENT
  Age: 49 Year
  Sex: Male
  Weight: 77 kg

DRUGS (3)
  1. CISPLATIN MYLAN [Suspect]
     Active Substance: CISPLATIN
     Indication: LIP AND/OR ORAL CAVITY CANCER
     Dosage: 75 MG/M^2, EQUIVALENT TO 150 MG SINGLE INTAKE
     Route: 042
     Dates: start: 20170915, end: 20170915
  2. FLUOROURACIL ACCORD [Suspect]
     Active Substance: FLUOROURACIL
     Indication: LIP AND/OR ORAL CAVITY CANCER
     Dosage: STRENGTH - 50 MG/ML, 3750 MG/M^2, EQUIVALENT TO 7300 MG
     Route: 042
     Dates: start: 20170918, end: 20170922
  3. TAXOTERE [Suspect]
     Active Substance: DOCETAXEL
     Indication: LIP AND/OR ORAL CAVITY CANCER
     Dosage: 75 MG/M^2, EQUIVALENT TO 150 MG SINGLE INTAKE
     Route: 042
     Dates: start: 20170915, end: 20170915

REACTIONS (3)
  - Colitis [Recovered/Resolved]
  - Flushing [Recovered/Resolved]
  - Aplasia [Recovered/Resolved]

NARRATIVE: CASE EVENT DATE: 201709
